FAERS Safety Report 12194055 (Version 1)
Quarter: 2016Q1

REPORT INFORMATION
  Report Type: Spontaneous
  Country: US (occurrence: None)
  Receive Date: 20160318
  Receipt Date: 20160318
  Transmission Date: 20160526
  Serious: Yes (Life-Threatening, Hospitalization)
  Sender: FDA-Public Use
  Company Number: None

PATIENT
  Age: 52 Year
  Sex: Male
  Weight: 72.58 kg

DRUGS (9)
  1. TOPROL XL [Concomitant]
     Active Substance: METOPROLOL SUCCINATE
  2. DEXILANT [Concomitant]
     Active Substance: DEXLANSOPRAZOLE
  3. PAXIL [Concomitant]
     Active Substance: PAROXETINE HYDROCHLORIDE
  4. ULORIC [Suspect]
     Active Substance: FEBUXOSTAT
     Indication: GOUT
     Dosage: 1 PILL ONCE A DAY ONCE DAILY TAKEN BY MOUTH
     Route: 048
     Dates: start: 20151116, end: 20160121
  5. SPIROLACTONE [Concomitant]
     Active Substance: SPIRONOLACTONE
  6. CLONODINE [Concomitant]
  7. TRENTAL [Concomitant]
     Active Substance: PENTOXIFYLLINE
  8. XIFAXAN [Concomitant]
     Active Substance: RIFAXIMIN
  9. LACTULOSE. [Concomitant]
     Active Substance: LACTULOSE

REACTIONS (2)
  - Drug-induced liver injury [None]
  - Toxicity to various agents [None]

NARRATIVE: CASE EVENT DATE: 20160122
